FAERS Safety Report 7442215-4 (Version None)
Quarter: 2011Q2

REPORT INFORMATION
  Report Type: 
  Country: None (occurrence: None)
  Receive Date: 20110428
  Receipt Date: 20110418
  Transmission Date: 20111010
  Serious: Yes (Hospitalization)
  Sender: FDA-Public Use
  Company Number: US-AMGEN-USASP2011020337

PATIENT
  Age: 39 Year
  Sex: Male

DRUGS (1)
  1. ENBREL [Suspect]
     Indication: PSORIATIC ARTHROPATHY
     Dosage: 50 MG, QWK
     Dates: start: 20100107

REACTIONS (10)
  - PAIN [None]
  - CYST [None]
  - LYMPHADENOPATHY [None]
  - TOOTHACHE [None]
  - ORAL PAIN [None]
  - GASTROINTESTINAL DISORDER [None]
  - GASTROINTESTINAL ULCER [None]
  - HAEMORRHOIDS [None]
  - TOOTH FRACTURE [None]
  - STOMATITIS [None]
